FAERS Safety Report 12142709 (Version 1)
Quarter: 2016Q1

REPORT INFORMATION
  Report Type: Spontaneous
  Country: GB (occurrence: GB)
  Receive Date: 20160303
  Receipt Date: 20160303
  Transmission Date: 20160526
  Serious: Yes (Hospitalization)
  Sender: FDA-Public Use
  Company Number: GB-AUROBINDO-AUR-APL-2016-02026

PATIENT
  Age: 73 Year
  Sex: Male

DRUGS (1)
  1. CIPROFLOXACIN FILM COATED TABLETS 500MG [Suspect]
     Active Substance: CIPROFLOXACIN
     Indication: PRODUCT USED FOR UNKNOWN INDICATION
     Dosage: 500 MG, UNK
     Route: 065
     Dates: start: 20160204, end: 20160207

REACTIONS (4)
  - Urinary tract infection [Unknown]
  - Abdominal discomfort [Unknown]
  - Malaise [Recovering/Resolving]
  - Irritable bowel syndrome [Unknown]
